FAERS Safety Report 7827000-3 (Version None)
Quarter: 2011Q4

REPORT INFORMATION
  Report Type: 
  Country: None (occurrence: None)
  Receive Date: 20111020
  Receipt Date: 20111007
  Transmission Date: 20120403
  Serious: Yes (Hospitalization, Other)
  Sender: FDA-Public Use
  Company Number: US-BAYER-2011-081789

PATIENT
  Age: 17 Year
  Sex: Female

DRUGS (2)
  1. YAZ [Suspect]
     Indication: CONTRACEPTION
     Dosage: UNK
     Route: 048
     Dates: start: 20080901, end: 20090901
  2. YAZ [Suspect]
     Indication: MENSTRUATION IRREGULAR

REACTIONS (8)
  - GASTRIC DISORDER [None]
  - DIARRHOEA [None]
  - CHOLECYSTITIS CHRONIC [None]
  - GALLBLADDER INJURY [None]
  - VOMITING [None]
  - DECREASED APPETITE [None]
  - SCAR [None]
  - BILIARY DYSKINESIA [None]
